FAERS Safety Report 4284754-3 (Version None)
Quarter: 2004Q1

REPORT INFORMATION
  Report Type: 
  Country: None (occurrence: None)
  Receive Date: 20040202
  Receipt Date: 20040119
  Transmission Date: 20041129
  Serious: Yes (Life-Threatening)
  Sender: FDA-Public Use
  Company Number: 2004003771

PATIENT
  Age: 39 Year
  Sex: Female

DRUGS (3)
  1. UNASYN [Suspect]
     Indication: PROPHYLAXIS
     Dosage: INTRAVENOUS
     Route: 042
     Dates: start: 20040107, end: 20040109
  2. ANAESTHETICS [Concomitant]
  3. CORTICOSTEROIDS [Concomitant]

REACTIONS (3)
  - BLISTER [None]
  - CONVULSION [None]
  - EXANTHEM [None]
